FAERS Safety Report 8582415-3 (Version None)
Quarter: 2012Q3

REPORT INFORMATION
  Report Type: 
  Country: None (occurrence: None)
  Receive Date: 20120809
  Receipt Date: 20120731
  Transmission Date: 20120928
  Serious: Yes (Hospitalization)
  Sender: FDA-Public Use
  Company Number: FR-GLAXOSMITHKLINE-B0813119A

PATIENT
  Sex: Male
  Weight: 57 kg

DRUGS (2)
  1. NORVIR [Concomitant]
     Indication: HIV TEST POSITIVE
     Route: 065
  2. ARIXTRA [Suspect]
     Indication: PULMONARY EMBOLISM
     Dosage: 7.5MG PER DAY
     Route: 058
     Dates: start: 20120426, end: 20120613

REACTIONS (4)
  - INCORRECT DRUG ADMINISTRATION DURATION [None]
  - PULMONARY HAEMORRHAGE [None]
  - FLANK PAIN [None]
  - ANAEMIA [None]
